FAERS Safety Report 16737590 (Version 3)
Quarter: 2019Q4

REPORT INFORMATION
  Report Type: Report from Study
  Country: US (occurrence: US)
  Receive Date: 20190823
  Receipt Date: 20191108
  Transmission Date: 20200122
  Serious: Yes (Hospitalization)
  Sender: FDA-Public Use
  Company Number: US-BAUSCH-BL-2019-023807

PATIENT
  Sex: Male
  Weight: 49.94 kg

DRUGS (10)
  1. XENAZINE [Suspect]
     Active Substance: TETRABENAZINE
     Route: 048
  2. KEPPRA [Concomitant]
     Active Substance: LEVETIRACETAM
     Indication: PRODUCT USED FOR UNKNOWN INDICATION
  3. CLONIDINE. [Concomitant]
     Active Substance: CLONIDINE
     Indication: PRODUCT USED FOR UNKNOWN INDICATION
     Dosage: PATCH TDWK (TRANSDERMAL WEEKLY)
  4. XENAZINE [Suspect]
     Active Substance: TETRABENAZINE
     Dosage: HALF TABLET TWICE A DAY FOR 1 WEEK
     Route: 048
  5. XENAZINE [Suspect]
     Active Substance: TETRABENAZINE
     Dosage: HALF TABLET AT BEDTIME ONLY FOR 1 WEEK
     Route: 048
  6. BENADRYL [Concomitant]
     Active Substance: DIPHENHYDRAMINE HYDROCHLORIDE
     Indication: PRODUCT USED FOR UNKNOWN INDICATION
     Dosage: 30 MG - 500 MG
  7. XENAZINE [Suspect]
     Active Substance: TETRABENAZINE
     Indication: HUNTINGTON^S DISEASE
     Dosage: HALF TABLET EVERY MORNING AND 1 TABLET EVERY EVENING FOR 1 WEEK
     Route: 048
     Dates: start: 2018
  8. ALBUTEROL SULFATE. [Concomitant]
     Active Substance: ALBUTEROL SULFATE
     Indication: PRODUCT USED FOR UNKNOWN INDICATION
  9. PREVACID [Concomitant]
     Active Substance: LANSOPRAZOLE
     Indication: PRODUCT USED FOR UNKNOWN INDICATION
     Dosage: DR
  10. VALPROIC ACID. [Concomitant]
     Active Substance: VALPROIC ACID
     Indication: PRODUCT USED FOR UNKNOWN INDICATION

REACTIONS (3)
  - Therapy cessation [Unknown]
  - Wrong technique in product usage process [Unknown]
  - Hospitalisation [Not Recovered/Not Resolved]
